FAERS Safety Report 11519746 (Version 1)
Quarter: 2015Q3

REPORT INFORMATION
  Report Type: Spontaneous
  Country: US (occurrence: US)
  Receive Date: 20150918
  Receipt Date: 20150918
  Transmission Date: 20151125
  Serious: No
  Sender: FDA-Public Use
  Company Number: US-GLENMARK PHARMACEUTICALS INC, USA.-2015GMK017431

PATIENT

DRUGS (2)
  1. NORETHINDRONE ACETATE TABLETS [Suspect]
     Active Substance: NORETHINDRONE ACETATE
     Indication: ENDOMETRIOSIS
     Dosage: 5 MG, QD
     Dates: start: 201503, end: 201503
  2. LEUPROLIDE ACETATE. [Suspect]
     Active Substance: LEUPROLIDE ACETATE
     Indication: ENDOMETRIOSIS
     Dosage: 0.125 MG, UNK, ONCE IN ONE MONTH
     Dates: start: 201503

REACTIONS (2)
  - Rash [Recovered/Resolved]
  - Swelling [Unknown]

NARRATIVE: CASE EVENT DATE: 201503
